FAERS Safety Report 4983055-5 (Version None)
Quarter: 2006Q2

REPORT INFORMATION
  Report Type: 
  Country: None (occurrence: None)
  Receive Date: 20060426
  Receipt Date: 20060329
  Transmission Date: 20061013
  Serious: Yes (Other)
  Sender: FDA-Public Use
  Company Number: PHEH2006US04152

PATIENT
  Age: 73 Year
  Sex: Male
  Weight: 63.038 kg

DRUGS (27)
  1. ZOMETA [Suspect]
     Indication: PROSTATE CANCER METASTATIC
     Dosage: 4 MG, QMO
     Dates: start: 20021024, end: 20041014
  2. WARFARIN SODIUM [Concomitant]
  3. NEURONTIN [Concomitant]
     Indication: NEUROPATHY
     Dosage: 600 MG, TID
     Dates: start: 20030101
  4. LUPRON [Concomitant]
     Dosage: 22.5 MG, UNK
     Dates: start: 20031128, end: 20050216
  5. LUPRON [Concomitant]
     Dosage: 7.5 MG, QMOS
     Dates: start: 20050517
  6. PANTOPRAZOLE [Concomitant]
  7. GLIPIZIDE [Concomitant]
  8. ALLEGRA [Concomitant]
  9. DEXAMETHASONE [Concomitant]
     Dates: start: 20040701, end: 20041104
  10. TAXOTERE [Concomitant]
     Dosage: 30 UG/M2, QWK, 3 ON AND 1 OFF
     Dates: start: 20040701, end: 20041104
  11. TAMSULOSIN HCL [Concomitant]
     Dosage: 0.4 MG, PO 2/D
     Route: 048
  12. EMCYT [Concomitant]
     Dates: start: 20040701, end: 20041104
  13. ZOLADEX [Concomitant]
     Dosage: 10.8 MG, Q3MOS
     Dates: start: 19920701, end: 20030515
  14. NILANDRON [Concomitant]
     Indication: PROSTATE CANCER
     Dosage: 150 MG/D
     Dates: start: 20020424, end: 20030515
  15. NIZORAL [Concomitant]
     Dosage: 200 MG, UNK
     Dates: start: 20030717, end: 20030901
  16. HYDROCORTISONE [Concomitant]
     Dosage: 30 MG/DAY
     Dates: start: 20030717, end: 20030901
  17. PREDNISONE [Concomitant]
     Indication: PROSTATE CANCER
     Dosage: 5 MG, BID
     Dates: start: 20050501
  18. GLUCOPHAGE [Concomitant]
     Indication: DIABETES MELLITUS
     Dosage: 500 MG, QD
     Dates: start: 20020101
  19. KLOR-CON [Concomitant]
     Dosage: 20 MEQ, BID
     Dates: start: 20050101
  20. EFFEXOR XR [Concomitant]
     Indication: DEPRESSION
     Dosage: 150 MG, QD
     Dates: start: 20050101
  21. GLUCOTROL XL [Concomitant]
     Indication: DIABETES MELLITUS
     Dosage: 10 MG, QD
     Dates: start: 20020101
  22. IROFULVEN [Concomitant]
  23. XELODA [Concomitant]
     Dates: end: 20051201
  24. ARANESP [Concomitant]
     Dosage: 200 UG, QOW
     Dates: start: 20040909
  25. MEGACE [Concomitant]
     Dosage: 20 MG, QD
     Dates: start: 20020101
  26. SIMVASTATIN [Concomitant]
     Indication: RHABDOMYOLYSIS
     Dosage: 20 MG, QD
     Dates: start: 20000101, end: 20030101
  27. KYTRIL [Concomitant]
     Indication: NAUSEA
     Dosage: 1 MG, PRN
     Dates: start: 20040101

REACTIONS (19)
  - ANAEMIA [None]
  - BONE DISORDER [None]
  - BONE TRIMMING [None]
  - DEPRESSION [None]
  - EATING DISORDER [None]
  - IMPAIRED HEALING [None]
  - MOUTH ULCERATION [None]
  - NEUROPATHY [None]
  - ORAL PAIN [None]
  - OSTEOMYELITIS CHRONIC [None]
  - OSTEONECROSIS [None]
  - PAIN IN JAW [None]
  - PATHOLOGICAL FRACTURE [None]
  - PERIPHERAL VASCULAR DISORDER [None]
  - RHABDOMYOLYSIS [None]
  - SOFT TISSUE INFECTION [None]
  - SWELLING [None]
  - TOOTH EXTRACTION [None]
  - WEIGHT DECREASED [None]
